FAERS Safety Report 7825589-1 (Version None)
Quarter: 2011Q4

REPORT INFORMATION
  Report Type: 
  Country: None (occurrence: None)
  Receive Date: 20111017
  Receipt Date: 20110930
  Transmission Date: 20120403
  Serious: Yes (Other)
  Sender: FDA-Public Use
  Company Number: NSR_00285_2011

PATIENT
  Age: 31 Year
  Sex: Female

DRUGS (11)
  1. LAMOTRIGINE [Suspect]
     Indication: OFF LABEL USE
     Dosage: (50 MG QD); (12.5 MG QD), (25 MG QD), (37.5 MG QD), (37.5 MG QD)
     Dates: start: 20100601
  2. LAMOTRIGINE [Suspect]
     Indication: MOOD ALTERED
     Dosage: (50 MG QD); (12.5 MG QD), (25 MG QD), (37.5 MG QD), (37.5 MG QD)
     Dates: start: 20100601
  3. LAMOTRIGINE [Suspect]
     Indication: OFF LABEL USE
     Dosage: (50 MG QD); (12.5 MG QD), (25 MG QD), (37.5 MG QD), (37.5 MG QD)
     Dates: start: 20100101
  4. LAMOTRIGINE [Suspect]
     Indication: MOOD ALTERED
     Dosage: (50 MG QD); (12.5 MG QD), (25 MG QD), (37.5 MG QD), (37.5 MG QD)
     Dates: start: 20100101
  5. LAMOTRIGINE [Suspect]
     Indication: OFF LABEL USE
     Dosage: (50 MG QD); (12.5 MG QD), (25 MG QD), (37.5 MG QD), (37.5 MG QD)
     Dates: start: 20100101
  6. LAMOTRIGINE [Suspect]
     Indication: MOOD ALTERED
     Dosage: (50 MG QD); (12.5 MG QD), (25 MG QD), (37.5 MG QD), (37.5 MG QD)
     Dates: start: 20100101
  7. LAMOTRIGINE [Suspect]
     Indication: OFF LABEL USE
     Dosage: (50 MG QD); (12.5 MG QD), (25 MG QD), (37.5 MG QD), (37.5 MG QD)
     Dates: start: 20100101
  8. LAMOTRIGINE [Suspect]
     Indication: MOOD ALTERED
     Dosage: (50 MG QD); (12.5 MG QD), (25 MG QD), (37.5 MG QD), (37.5 MG QD)
     Dates: start: 20100101
  9. LAMOTRIGINE [Suspect]
     Indication: OFF LABEL USE
     Dosage: (50 MG QD); (12.5 MG QD), (25 MG QD), (37.5 MG QD), (37.5 MG QD)
     Dates: start: 20100101
  10. LAMOTRIGINE [Suspect]
     Indication: MOOD ALTERED
     Dosage: (50 MG QD); (12.5 MG QD), (25 MG QD), (37.5 MG QD), (37.5 MG QD)
     Dates: start: 20100101
  11. DULOXETIME HYDROCHLORIDE [Concomitant]

REACTIONS (2)
  - HYPOMANIA [None]
  - INJURY [None]
